FAERS Safety Report 9049838 (Version 1)
Quarter: 2013Q1

REPORT INFORMATION
  Report Type: Spontaneous
  Country: KR (occurrence: KR)
  Receive Date: 20130204
  Receipt Date: 20130204
  Transmission Date: 20140127
  Serious: Yes (Hospitalization)
  Sender: FDA-Public Use
  Company Number: KR-009507513-1301KOR003173

PATIENT
  Age: 53 Year
  Sex: Male
  Weight: 67 kg

DRUGS (10)
  1. ISENTRESS [Suspect]
     Indication: HIV INFECTION
     Dosage: 400 MG, BID
     Route: 048
     Dates: start: 20110304, end: 20110904
  2. ZIAGEN [Concomitant]
     Indication: HIV INFECTION
     Dosage: 600 MG, QD
     Route: 048
     Dates: start: 20101203, end: 20110304
  3. ZIAGEN [Concomitant]
     Dosage: 300 MG, BID
     Route: 048
     Dates: start: 20110304
  4. LAMIVUDINE [Concomitant]
     Indication: HIV INFECTION
     Dosage: 300 MG, QD
     Route: 048
     Dates: start: 20101203, end: 20110304
  5. LAMIVUDINE [Concomitant]
     Dosage: 150 MG, BID
     Route: 048
     Dates: start: 20110304
  6. AMARYL [Concomitant]
     Indication: DIABETES MELLITUS
     Dosage: 4 MG, QD
     Route: 048
     Dates: start: 20110304, end: 20110530
  7. AMARYL [Concomitant]
     Dosage: 3 MG, QD
     Route: 048
     Dates: start: 20110530
  8. DIABEX [Concomitant]
     Indication: DIABETES MELLITUS
     Dosage: 500 MG, BID
     Route: 048
     Dates: start: 20110304
  9. GLUCOBAY [Concomitant]
     Indication: DIABETES MELLITUS
     Dosage: 100 MG, TID
     Route: 048
     Dates: start: 20110304
  10. ATACAND [Concomitant]
     Indication: HYPERTENSION
     Dosage: 16 MG, QD
     Route: 048
     Dates: start: 20110304

REACTIONS (1)
  - Prinzmetal angina [Recovered/Resolved]
